FAERS Safety Report 21266546 (Version 1)
Quarter: 2022Q3

REPORT INFORMATION
  Report Type: Spontaneous
  Country: US (occurrence: None)
  Receive Date: 20220826
  Receipt Date: 20220826
  Transmission Date: 20221026
  Serious: No
  Sender: FDA-Public Use
  Company Number: None

PATIENT
  Age: 44 Year
  Sex: Female
  Weight: 93.89 kg

DRUGS (1)
  1. LEVOTHYROXINE [Suspect]
     Active Substance: LEVOTHYROXINE
     Indication: Hypothyroidism
     Dosage: FREQUENCY : DAILY;?
     Route: 048
     Dates: start: 20190826, end: 20200416

REACTIONS (4)
  - Blood thyroid stimulating hormone abnormal [None]
  - Weight increased [None]
  - Fatigue [None]
  - Product substitution issue [None]

NARRATIVE: CASE EVENT DATE: 20190826
